FAERS Safety Report 13884712 (Version 1)
Quarter: 2017Q3

REPORT INFORMATION
  Report Type: Spontaneous
  Country: IL (occurrence: IL)
  Receive Date: 20170821
  Receipt Date: 20170821
  Transmission Date: 20171127
  Serious: Yes (Hospitalization, Other)
  Sender: FDA-Public Use
  Company Number: IL-ALVOGEN-2017-ALVOGEN-093097

PATIENT
  Age: 91 Year
  Sex: Male

DRUGS (1)
  1. MINOCYCLINE [Suspect]
     Active Substance: MINOCYCLINE\MINOCYCLINE HYDROCHLORIDE
     Indication: PEMPHIGOID

REACTIONS (9)
  - Pleural effusion [Recovered/Resolved]
  - Haemoglobin decreased [None]
  - Atelectasis [None]
  - Atrial fibrillation [None]
  - Respiratory distress [None]
  - Skin discolouration [Recovering/Resolving]
  - Aortic stenosis [None]
  - Chylothorax [Recovered/Resolved]
  - Lupus-like syndrome [Recovered/Resolved]
